FAERS Safety Report 24443839 (Version 2)
Quarter: 2024Q4

REPORT INFORMATION
  Report Type: Report from Study
  Country: CA (occurrence: CA)
  Receive Date: 20241016
  Receipt Date: 20241017
  Transmission Date: 20250115
  Serious: No
  Sender: ROCHE
  Company Number: CA-ROCHE-2224730

PATIENT
  Age: 30 Year
  Sex: Male
  Weight: 120.2 kg

DRUGS (12)
  1. RITUXAN [Suspect]
     Active Substance: RITUXIMAB
     Indication: Granulomatosis with polyangiitis
     Dosage: OUTSIDE RPAP
     Route: 042
     Dates: start: 2015
  2. RITUXAN [Suspect]
     Active Substance: RITUXIMAB
     Dosage: FREQUENCY TEXT:DAY 1, 15
     Route: 042
     Dates: start: 20181128, end: 20181218
  3. RITUXAN [Suspect]
     Active Substance: RITUXIMAB
     Dosage: FREQUENCY TEXT:SINGLE INFUSION
     Route: 042
     Dates: start: 20190515, end: 20190515
  4. RITUXAN [Suspect]
     Active Substance: RITUXIMAB
     Route: 042
     Dates: start: 20191107
  5. RITUXAN [Suspect]
     Active Substance: RITUXIMAB
     Route: 042
  6. RITUXAN [Suspect]
     Active Substance: RITUXIMAB
     Route: 042
  7. RITUXAN [Suspect]
     Active Substance: RITUXIMAB
     Route: 042
  8. DIPHENHYDRAMINE HYDROCHLORIDE [Concomitant]
     Active Substance: DIPHENHYDRAMINE HYDROCHLORIDE
     Route: 048
     Dates: start: 20181128
  9. ACETAMINOPHEN [Concomitant]
     Active Substance: ACETAMINOPHEN
     Route: 048
     Dates: start: 20181128
  10. METHYLPREDNISOLONE [Concomitant]
     Active Substance: METHYLPREDNISOLONE
     Route: 042
     Dates: start: 20181128
  11. METHOTREXATE [Concomitant]
     Active Substance: METHOTREXATE
  12. FOLIC ACID [Concomitant]
     Active Substance: FOLIC ACID

REACTIONS (5)
  - Infusion related reaction [Recovering/Resolving]
  - Oxygen saturation decreased [Unknown]
  - Heart rate decreased [Unknown]
  - Hepatic enzyme increased [Unknown]
  - Weight increased [Unknown]

NARRATIVE: CASE EVENT DATE: 20181128
